FAERS Safety Report 4982679-9 (Version None)
Quarter: 2006Q2

REPORT INFORMATION
  Report Type: 
  Country: None (occurrence: None)
  Receive Date: 20060425
  Receipt Date: 20060106
  Transmission Date: 20061013
  Serious: Yes (Hospitalization, Other)
  Sender: FDA-Public Use
  Company Number: US-MERCK-0601USA00706

PATIENT
  Age: 48 Year
  Sex: Male
  Weight: 77 kg

DRUGS (22)
  1. VIOXX [Suspect]
     Indication: ARTHRALGIA
     Route: 048
     Dates: start: 20000324, end: 20040601
  2. FLONASE [Concomitant]
     Route: 065
  3. EFFEXOR [Concomitant]
     Indication: DEPRESSION
     Route: 065
     Dates: start: 19990801
  4. ACETAMINOPHEN AND HYDROCODONE BITARTRATE [Concomitant]
     Route: 065
  5. AMBIEN [Concomitant]
     Indication: SLEEP DISORDER
     Route: 065
  6. MIRALAX [Concomitant]
     Route: 065
  7. LIPITOR [Concomitant]
     Route: 048
     Dates: start: 19991101, end: 20040801
  8. ZYRTEC-D 12 HOUR [Concomitant]
     Route: 065
  9. ADVAIR DISKUS 100/50 [Concomitant]
     Route: 065
  10. NITROSTAT [Concomitant]
     Indication: CHEST PAIN
     Route: 060
  11. NITROQUICK [Concomitant]
     Route: 065
  12. ALLEGRA [Concomitant]
     Route: 065
  13. NAPROXEN [Concomitant]
     Route: 065
     Dates: start: 20000101, end: 20020501
  14. ACCOLATE [Concomitant]
     Route: 065
  15. DIAZEPAM [Concomitant]
     Route: 065
     Dates: start: 19990801
  16. SINGULAIR [Concomitant]
     Route: 065
  17. OXYCONTIN [Concomitant]
     Route: 065
     Dates: start: 20000501
  18. OXYCONTIN [Concomitant]
     Route: 065
     Dates: start: 20000501
  19. OXYCONTIN [Concomitant]
     Route: 065
     Dates: start: 20000501
  20. RELAFEN [Concomitant]
     Route: 065
     Dates: start: 20000101, end: 20000301
  21. THEOPHYLLINE [Concomitant]
     Indication: ASTHMA
     Route: 065
     Dates: start: 20000101, end: 20010501
  22. CARDIZEM [Concomitant]
     Route: 048

REACTIONS (5)
  - ANXIETY [None]
  - CARDIAC DISORDER [None]
  - CHEST PAIN [None]
  - MYOCARDIAL INFARCTION [None]
  - OSTEONECROSIS [None]
